FAERS Safety Report 4461744-9 (Version None)
Quarter: 2004Q3

REPORT INFORMATION
  Report Type: 
  Country: None (occurrence: None)
  Receive Date: 20040929
  Receipt Date: 20040524
  Transmission Date: 20050211
  Serious: Yes (Death)
  Sender: FDA-Public Use
  Company Number: JP-JNJFOC-20040903177

PATIENT
  Sex: Female

DRUGS (5)
  1. FENTANYL [Suspect]
     Route: 062
     Dates: start: 20030822, end: 20040725
  2. FENTANYL [Suspect]
     Indication: CANCER PAIN
     Route: 062
     Dates: start: 20030822, end: 20040725
  3. SENNOSIDE [Concomitant]
     Indication: DRUG USE FOR UNKNOWN INDICATION
     Route: 049
     Dates: start: 20030717
  4. MORPHINE HYDROCHLORIDE [Concomitant]
     Indication: CANCER PAIN
     Route: 049
     Dates: start: 20030818
  5. CARBOPLATIN [Concomitant]
     Indication: DRUG USE FOR UNKNOWN INDICATION

REACTIONS (6)
  - ANAPHYLACTIC REACTION [None]
  - ANAPHYLACTOID REACTION [None]
  - APPLICATION SITE REACTION [None]
  - DERMATITIS CONTACT [None]
  - GASTROINTESTINAL PERFORATION [None]
  - PERITONITIS [None]
